FAERS Safety Report 5856409-2 (Version None)
Quarter: 2008Q3

REPORT INFORMATION
  Report Type: 
  Country: None (occurrence: None)
  Receive Date: 20080821
  Receipt Date: 20080821
  Transmission Date: 20090109
  Serious: No
  Sender: FDA-Public Use
  Company Number: None

PATIENT
  Age: 54 Year
  Sex: Female

DRUGS (3)
  1. COMBIVIR [Suspect]
     Dates: start: 20060731
  2. BLACK COHOSH ROOT [Suspect]
     Dates: start: 20030101, end: 20060701
  3. TRUVADA [Suspect]
     Dates: start: 20051116, end: 20060605

REACTIONS (6)
  - BLOOD BILIRUBIN INCREASED [None]
  - COAGULOPATHY [None]
  - HEPATIC CIRRHOSIS [None]
  - LIVER DISORDER [None]
  - MICROANGIOPATHIC HAEMOLYTIC ANAEMIA [None]
  - PRURITUS [None]
